FAERS Safety Report 13038510 (Version 2)
Quarter: 2019Q4

REPORT INFORMATION
  Report Type: Spontaneous
  Country: AT (occurrence: AT)
  Receive Date: 20161219
  Receipt Date: 20191220
  Transmission Date: 20200122
  Serious: Yes (Life-Threatening, Hospitalization, Disabling)
  Sender: FDA-Public Use
  Company Number: AT-ASTRAZENECA-2016SF31871

PATIENT
  Age: 26485 Day
  Sex: Male

DRUGS (7)
  1. CONCOR [Concomitant]
     Active Substance: BISOPROLOL FUMARATE
     Route: 048
  2. ATORVASTATIN [Concomitant]
     Active Substance: ATORVASTATIN
     Route: 048
  3. LASILACTON [Concomitant]
     Active Substance: FUROSEMIDE\SPIRONOLACTONE
  4. HYPREN [Concomitant]
  5. BRILIQUE [Suspect]
     Active Substance: TICAGRELOR
     Indication: THROMBOSIS PROPHYLAXIS
     Route: 048
     Dates: start: 20161019, end: 20161121
  6. THROMBO ASS [Concomitant]
     Active Substance: ASPIRIN
     Route: 048
  7. PANTOLOC [Concomitant]
     Active Substance: PANTOPRAZOLE SODIUM
     Dosage: 40.0MG UNKNOWN
     Route: 048

REACTIONS (2)
  - Drug ineffective [Recovered/Resolved with Sequelae]
  - Vascular stent thrombosis [Recovered/Resolved with Sequelae]

NARRATIVE: CASE EVENT DATE: 20161121
